FAERS Safety Report 25843683 (Version 1)
Quarter: 2025Q3

REPORT INFORMATION
  Report Type: Spontaneous
  Country: US (occurrence: US)
  Receive Date: 20250924
  Receipt Date: 20250924
  Transmission Date: 20251021
  Serious: Yes (Other)
  Sender: BAUSCH AND LOMB
  Company Number: US-BAUSCHBL-2025BNL028738

PATIENT
  Age: 93 Year
  Sex: Male

DRUGS (12)
  1. DICLOFENAC OPHTHALMIC [Suspect]
     Active Substance: DICLOFENAC SODIUM
     Indication: Cystoid macular oedema
     Dosage: OS
     Route: 047
  2. BRIMONIDINE TARTRATE [Concomitant]
     Active Substance: BRIMONIDINE TARTRATE
     Indication: Open angle glaucoma
  3. DORZOLAMIDE HYDROCHLORIDE [Concomitant]
     Active Substance: DORZOLAMIDE HYDROCHLORIDE
     Indication: Open angle glaucoma
  4. TIMOLOL MALEATE [Concomitant]
     Active Substance: TIMOLOL MALEATE
     Indication: Open angle glaucoma
  5. NETARSUDIL [Concomitant]
     Active Substance: NETARSUDIL
     Indication: Open angle glaucoma
  6. DIFLUPREDNATE [Concomitant]
     Active Substance: DIFLUPREDNATE
     Indication: Cystoid macular oedema
     Dosage: IN HIS LEFT EYE
     Route: 047
  7. DIFLUPREDNATE [Concomitant]
     Active Substance: DIFLUPREDNATE
     Dosage: IN HIS LEFT EYE
     Route: 047
  8. INTERFERON ALPHA 2B-LIKE PROTEIN [Concomitant]
     Indication: Cystoid macular oedema
     Dosage: IN HIS LEFT EYE 1 MIU/ML
     Route: 047
  9. INTERFERON ALPHA 2B-LIKE PROTEIN [Concomitant]
     Indication: Intraocular pressure increased
     Dosage: IN HIS LEFT EYE
     Route: 047
  10. INTERFERON ALPHA 2B-LIKE PROTEIN [Concomitant]
     Dosage: IN HIS LEFT EYE 1 MIU/ML
     Route: 047
  11. PREDNISOLONE ACETATE [Concomitant]
     Active Substance: PREDNISOLONE ACETATE
     Indication: Open angle glaucoma
     Dosage: IN HIS LEFT EYE
     Route: 047
  12. PREDNISOLONE ACETATE [Concomitant]
     Active Substance: PREDNISOLONE ACETATE
     Dosage: IN HIS LEFT EYE

REACTIONS (1)
  - Therapy non-responder [Unknown]
